FAERS Safety Report 5027876-1 (Version None)
Quarter: 2006Q2

REPORT INFORMATION
  Report Type: 
  Country: None (occurrence: None)
  Receive Date: 20060616
  Receipt Date: 20060605
  Transmission Date: 20061013
  Serious: Yes (Hospitalization)
  Sender: FDA-Public Use
  Company Number: US-ROCHE-450885

PATIENT
  Age: 45 Year
  Sex: Male

DRUGS (6)
  1. PEGASYS [Suspect]
     Indication: HEPATITIS C
     Route: 065
     Dates: start: 20050115, end: 20050915
  2. PEGASYS [Suspect]
     Route: 065
     Dates: start: 20060115
  3. RIBAVIRIN [Suspect]
     Indication: HEPATITIS C
     Route: 065
     Dates: start: 20050115, end: 20050915
  4. RIBAVIRIN [Suspect]
     Route: 065
     Dates: start: 20060115, end: 20060421
  5. PROCRIT [Suspect]
     Indication: ANAEMIA
     Route: 065
     Dates: start: 20050115, end: 20050915
  6. PROCRIT [Suspect]
     Route: 065
     Dates: start: 20060115

REACTIONS (2)
  - ANAEMIA [None]
  - CEREBROVASCULAR ACCIDENT [None]
